FAERS Safety Report 16403552 (Version 2)
Quarter: 2025Q3

REPORT INFORMATION
  Report Type: Report from Study
  Country: EU (occurrence: EU)
  Receive Date: 20190607
  Receipt Date: 20250722
  Transmission Date: 20251021
  Serious: Yes (Other)
  Sender: AUROBINDO
  Company Number: EU-AUROBINDO-AUR-APL-2019-031588

PATIENT
  Age: 39 Year
  Sex: Female

DRUGS (4)
  1. EFAVIRENZ [Interacting]
     Active Substance: EFAVIRENZ
     Indication: HIV infection
     Route: 065
  2. TENOFOVIR DISOPROXIL [Interacting]
     Active Substance: TENOFOVIR DISOPROXIL
     Indication: HIV infection
     Route: 065
  3. ORLISTAT [Interacting]
     Active Substance: ORLISTAT
     Indication: HIV infection
     Route: 065
  4. EMTRICITABINE [Interacting]
     Active Substance: EMTRICITABINE
     Indication: HIV infection
     Route: 065

REACTIONS (2)
  - Virologic failure [Unknown]
  - Drug interaction [Unknown]
